FAERS Safety Report 8265691-6 (Version None)
Quarter: 2012Q2

REPORT INFORMATION
  Report Type: 
  Country: None (occurrence: None)
  Receive Date: 20120406
  Receipt Date: 20120405
  Transmission Date: 20120825
  Serious: Yes (Life-Threatening, Other)
  Sender: FDA-Public Use
  Company Number: JP-B.I. PHARMACEUTICALS,INC./RIDGEFIELD-2012-BP-06399NB

PATIENT
  Age: 70 Year
  Sex: Male

DRUGS (9)
  1. PRADAXA [Suspect]
     Dosage: 220 MG
     Route: 048
  2. PRADAXA [Suspect]
     Dosage: 300 MG
     Route: 048
     Dates: start: 20110915, end: 20111226
  3. ZYPREXA [Concomitant]
     Dosage: 10 MG
     Route: 048
     Dates: start: 20100914
  4. SHIMBU-TO [Concomitant]
     Dosage: 7.5 G
     Route: 048
     Dates: start: 20101021
  5. PRADAXA [Suspect]
     Indication: ATRIAL FIBRILLATION
     Dosage: 300 MG
     Route: 048
     Dates: start: 20110501
  6. BLOSTAR M [Concomitant]
     Dosage: 20 MG
     Route: 048
     Dates: start: 20101222
  7. TAMSULOSIN HCL [Concomitant]
     Dosage: 10 MG
     Route: 048
     Dates: start: 20101008
  8. LASIX [Concomitant]
     Dosage: 10 MG
     Route: 048
     Dates: start: 20110726
  9. ALDACTONE [Concomitant]
     Dosage: 25 MG
     Route: 048
     Dates: start: 20110726

REACTIONS (4)
  - PNEUMONIA [None]
  - ANAEMIA [None]
  - DISSEMINATED INTRAVASCULAR COAGULATION [None]
  - AORTIC DISSECTION [None]
